FAERS Safety Report 19726218 (Version 14)
Quarter: 2023Q1

REPORT INFORMATION
  Report Type: Report from Study
  Country: US (occurrence: US)
  Receive Date: 20210819
  Receipt Date: 20230321
  Transmission Date: 20230418
  Serious: Yes (Other)
  Sender: FDA-Public Use
  Company Number: NVSC2021US182426

PATIENT
  Sex: Female
  Weight: 58.957 kg

DRUGS (6)
  1. TREPROSTINIL [Suspect]
     Active Substance: TREPROSTINIL
     Indication: Pulmonary arterial hypertension
     Dosage: 40 NG/KG/MIN, CONT
     Route: 058
     Dates: start: 20210607
  2. TREPROSTINIL [Suspect]
     Active Substance: TREPROSTINIL
     Dosage: 50 NG/KG/MIN, CONT
     Route: 058
  3. TREPROSTINIL [Suspect]
     Active Substance: TREPROSTINIL
     Dosage: 63 NG/KG/MIN,CONT
     Route: 058
  4. TREPROSTINIL [Suspect]
     Active Substance: TREPROSTINIL
     Dosage: 57 NG/KG/MIN, CONT
     Route: 058
  5. TREPROSTINIL [Suspect]
     Active Substance: TREPROSTINIL
     Dosage: 61 NG/KG/MIN, CONT
     Route: 058
  6. SILDENAFIL CITRATE [Concomitant]
     Active Substance: SILDENAFIL CITRATE
     Indication: Product used for unknown indication
     Dosage: UNK
     Route: 065

REACTIONS (16)
  - Syncope [Unknown]
  - Loss of consciousness [Unknown]
  - Device dislocation [Unknown]
  - Rhinorrhoea [Recovered/Resolved]
  - Pain [Not Recovered/Not Resolved]
  - Dyspnoea [Unknown]
  - Pain in extremity [Unknown]
  - Pain in jaw [Unknown]
  - Nausea [Unknown]
  - Infusion site bruising [Unknown]
  - Infusion site induration [Unknown]
  - Infusion site discolouration [Unknown]
  - Infusion site haemorrhage [Unknown]
  - Infusion site pain [Unknown]
  - Infusion site erythema [Unknown]
  - Infusion site swelling [Unknown]
